FAERS Safety Report 6151879-7 (Version None)
Quarter: 2009Q2

REPORT INFORMATION
  Report Type: 
  Country: None (occurrence: None)
  Receive Date: 20090410
  Receipt Date: 20090401
  Transmission Date: 20091009
  Serious: Yes (Other)
  Sender: FDA-Public Use
  Company Number: PT-ELI_LILLY_AND_COMPANY-PT200903005041

PATIENT
  Age: 68 Year
  Sex: Male

DRUGS (3)
  1. CIALIS [Suspect]
     Indication: ERECTILE DYSFUNCTION
     Dosage: 10 MG, UNK
     Route: 048
     Dates: start: 20090301
  2. LOSARTAN POTASSIUM [Concomitant]
     Dosage: UNK, UNKNOWN
     Route: 065
  3. VERAPRESS [Concomitant]
     Dosage: UNK, UNKNOWN
     Route: 065

REACTIONS (4)
  - ARRHYTHMIA [None]
  - DYSPEPSIA [None]
  - EUPHORIC MOOD [None]
  - TREMOR [None]
